FAERS Safety Report 14356778 (Version 2)
Quarter: 2018Q1

REPORT INFORMATION
  Report Type: Report from Study
  Country: US (occurrence: US)
  Receive Date: 20180105
  Receipt Date: 20180125
  Transmission Date: 20180509
  Serious: No
  Sender: FDA-Public Use
  Company Number: US-AMGEN-USASL2017143578

PATIENT
  Age: 67 Year
  Sex: Male
  Weight: 72.56 kg

DRUGS (1)
  1. REPATHA [Suspect]
     Active Substance: EVOLOCUMAB
     Indication: HYPERCHOLESTEROLAEMIA
     Dosage: 140 MG, Q2WK
     Route: 058
     Dates: start: 20170113

REACTIONS (6)
  - Muscular weakness [Unknown]
  - Dyspnoea [Recovered/Resolved]
  - Chest pain [Unknown]
  - Feeling abnormal [Unknown]
  - Gastrointestinal disorder [Unknown]
  - Fatigue [Recovered/Resolved]

NARRATIVE: CASE EVENT DATE: 2017
